FAERS Safety Report 6826272-1 (Version None)
Quarter: 2010Q3

REPORT INFORMATION
  Report Type: 
  Country: None (occurrence: None)
  Receive Date: 20100709
  Receipt Date: 20100629
  Transmission Date: 20110219
  Serious: Yes (Other)
  Sender: FDA-Public Use
  Company Number: FR-PFIZER INC-2010080652

PATIENT
  Age: 39 Year
  Sex: Female

DRUGS (1)
  1. XANAX [Suspect]
     Indication: INSOMNIA
     Dosage: 0.25 MG, 1X/DAY
     Route: 048

REACTIONS (1)
  - ABORTION SPONTANEOUS [None]
